FAERS Safety Report 12414788 (Version 1)
Quarter: 2016Q2

REPORT INFORMATION
  Report Type: Report from Study
  Country: BR (occurrence: BR)
  Receive Date: 20160529
  Receipt Date: 20160529
  Transmission Date: 20160815
  Serious: Yes (Other)
  Sender: FDA-Public Use
  Company Number: PHHY2016BR021700

PATIENT
  Age: 47 Year
  Sex: Female
  Weight: 64 kg

DRUGS (3)
  1. SANDOSTATIN LAR DEPOT [Suspect]
     Active Substance: OCTREOTIDE ACETATE
     Indication: ACROMEGALY
     Dosage: 20 MG, QMO
     Route: 030
     Dates: start: 201501
  2. SANDOSTATIN LAR DEPOT [Suspect]
     Active Substance: OCTREOTIDE ACETATE
     Dosage: 40 MG (2 AMPOULES OF 20 MG), EVERY 20 DAYS
     Route: 030
  3. SANDOSTATIN LAR DEPOT [Suspect]
     Active Substance: OCTREOTIDE ACETATE
     Dosage: 40 MG (2 AMPOULES OF 20 MG) QMO
     Route: 030

REACTIONS (4)
  - Procedural haemorrhage [Unknown]
  - Inappropriate schedule of drug administration [Unknown]
  - Weight decreased [Unknown]
  - Drug ineffective [Unknown]

NARRATIVE: CASE EVENT DATE: 20150808
